FAERS Safety Report 22233222 (Version 1)
Quarter: 2023Q2

REPORT INFORMATION
  Report Type: Spontaneous
  Country: US (occurrence: None)
  Receive Date: 20230420
  Receipt Date: 20230420
  Transmission Date: 20230722
  Serious: No
  Sender: FDA-Public Use
  Company Number: US-ROCHE-3094145

PATIENT
  Age: 78 Year
  Sex: Male

DRUGS (3)
  1. ESBRIET [Suspect]
     Active Substance: PIRFENIDONE
     Indication: Idiopathic pulmonary fibrosis
     Dosage: 3 PILLS 3 TIMES A DAY
     Route: 048
  2. DILANTIN [Concomitant]
     Active Substance: PHENYTOIN
  3. DIVALPROEX SODIUM [Concomitant]
     Active Substance: DIVALPROEX SODIUM

REACTIONS (4)
  - Decreased appetite [Unknown]
  - Nausea [Unknown]
  - Brain fog [Unknown]
  - Quality of life decreased [Unknown]
